FAERS Safety Report 12289260 (Version 35)
Quarter: 2018Q1

REPORT INFORMATION
  Report Type: Report from Study
  Country: CA (occurrence: CA)
  Receive Date: 20160421
  Receipt Date: 20180216
  Transmission Date: 20180508
  Serious: Yes (Hospitalization, Other)
  Sender: FDA-Public Use
  Company Number: CA-ROCHE-1713608

PATIENT
  Age: 48 Year
  Sex: Male
  Weight: 90 kg

DRUGS (6)
  1. METHOTREXATE. [Suspect]
     Active Substance: METHOTREXATE
     Indication: PRODUCT USED FOR UNKNOWN INDICATION
     Route: 065
  2. SIMPONI [Concomitant]
     Active Substance: GOLIMUMAB
     Dosage: LAST INJECTION 25-SEPT-UNK
     Route: 065
  3. ACTEMRA [Suspect]
     Active Substance: TOCILIZUMAB
     Indication: RHEUMATOID ARTHRITIS
     Route: 042
     Dates: start: 20151224
  4. ACTEMRA [Suspect]
     Active Substance: TOCILIZUMAB
     Route: 042
     Dates: start: 20160126
  5. ACTEMRA [Suspect]
     Active Substance: TOCILIZUMAB
     Dosage: INFUSION NUMBER 14
     Route: 042
     Dates: start: 20170523
  6. FOLIC ACID. [Concomitant]
     Active Substance: FOLIC ACID

REACTIONS (30)
  - Weight decreased [Recovering/Resolving]
  - Pain [Not Recovered/Not Resolved]
  - Lung neoplasm [Unknown]
  - Nephrolithiasis [Unknown]
  - Blood pressure increased [Unknown]
  - Intercepted product storage error [Unknown]
  - Pharyngeal abscess [Recovered/Resolved]
  - Infection [Unknown]
  - Nausea [Unknown]
  - Swelling [Unknown]
  - Nasopharyngitis [Not Recovered/Not Resolved]
  - Bronchitis [Not Recovered/Not Resolved]
  - Infection [Recovering/Resolving]
  - Pharyngitis [Not Recovered/Not Resolved]
  - Fall [Unknown]
  - Ill-defined disorder [Not Recovered/Not Resolved]
  - Nephrolithiasis [Not Recovered/Not Resolved]
  - Post procedural infection [Not Recovered/Not Resolved]
  - Pituitary tumour [Unknown]
  - Hypoaesthesia [Not Recovered/Not Resolved]
  - Pancreatic neoplasm [Unknown]
  - Mouth ulceration [Recovered/Resolved]
  - Vomiting [Not Recovered/Not Resolved]
  - Skin infection [Unknown]
  - Anxiety [Not Recovered/Not Resolved]
  - Pancreatic carcinoma [Unknown]
  - Spleen disorder [Unknown]
  - Oral infection [Recovered/Resolved]
  - Arthritis [Not Recovered/Not Resolved]
  - Urinary tract infection [Unknown]

NARRATIVE: CASE EVENT DATE: 2016
